FAERS Safety Report 21400608 (Version 2)
Quarter: 2022Q4

REPORT INFORMATION
  Report Type: Report from Study
  Country: US (occurrence: US)
  Receive Date: 20221003
  Receipt Date: 20221204
  Transmission Date: 20230113
  Serious: Yes (Hospitalization)
  Sender: FDA-Public Use
  Company Number: US-ABBVIE-4135284

PATIENT
  Age: 63 Year
  Sex: Female

DRUGS (14)
  1. RINVOQ [Suspect]
     Active Substance: UPADACITINIB
     Indication: Rheumatoid arthritis
     Dosage: STRENGTH: 15 MG
     Route: 048
     Dates: start: 2021
  2. AMITRIPTYLINE HCL 25 MG TABLET [Concomitant]
     Indication: Product used for unknown indication
  3. OXYGEN [Concomitant]
     Active Substance: OXYGEN
     Indication: Product used for unknown indication
  4. FEXOFENADINE HCL 180 MG TABLET [Concomitant]
     Indication: Product used for unknown indication
  5. SINGULAIR [Concomitant]
     Active Substance: MONTELUKAST SODIUM
     Indication: Product used for unknown indication
  6. IMITREX 50 MG TABLET [Concomitant]
     Indication: Product used for unknown indication
  7. DICLOFENAC SODIUM 75 MG TABLET [Concomitant]
     Indication: Product used for unknown indication
  8. ADACEL TDAP 2-2.5-5/.5 SYRINGE [Concomitant]
     Indication: Product used for unknown indication
  9. FLONASE ALLERGY RELIEF [Concomitant]
     Active Substance: FLUTICASONE PROPIONATE
     Indication: Product used for unknown indication
  10. CYMBALTA 60 MG CAPSULE DR, [Concomitant]
     Indication: Product used for unknown indication
  11. TOPIRAMATE [Concomitant]
     Active Substance: TOPIRAMATE
     Indication: Product used for unknown indication
  12. VIACTIV 650MG-12.5 TAB CHEW [Concomitant]
     Indication: Product used for unknown indication
  13. SHINGRIX 50 MCG/0.5 KIT [Concomitant]
     Indication: Product used for unknown indication
  14. PFIZER-BIONTECH COVID-19 VACCINE [Concomitant]
     Active Substance: TOZINAMERAN
     Indication: COVID-19 immunisation
     Dosage: 1ST DOSE, ONCE
     Route: 030

REACTIONS (5)
  - Pneumonia [Unknown]
  - Pyrexia [Unknown]
  - Pain [Unknown]
  - Musculoskeletal disorder [Not Recovered/Not Resolved]
  - Blood cholesterol increased [Not Recovered/Not Resolved]

NARRATIVE: CASE EVENT DATE: 20220901
